FAERS Safety Report 9586870 (Version 1)
Quarter: 2013Q4

REPORT INFORMATION
  Report Type: Spontaneous
  Country: GB (occurrence: GB)
  Receive Date: 20131003
  Receipt Date: 20131003
  Transmission Date: 20140711
  Serious: Yes (Other)
  Sender: FDA-Public Use
  Company Number: PHFR2013GB005563

PATIENT
  Sex: Male

DRUGS (4)
  1. LAMISIL [Suspect]
     Indication: ONYCHOMYCOSIS
     Dosage: UNK UKN, UNK
     Route: 048
     Dates: start: 2007
  2. ATENOLOL [Concomitant]
     Dosage: UNK UKN, UNK
  3. LISINOPRIL [Concomitant]
     Dosage: UNK UKN, UNK
  4. BENDROFLUMETHIAZIDE [Concomitant]
     Dosage: UNK UKN, UNK

REACTIONS (1)
  - Convulsion [Unknown]
